FAERS Safety Report 9053514 (Version 1)
Quarter: 2013Q1

REPORT INFORMATION
  Report Type: Spontaneous
  Country: US (occurrence: None)
  Receive Date: 20130201
  Receipt Date: 20130201
  Transmission Date: 20140127
  Serious: Yes (Hospitalization)
  Sender: FDA-Public Use
  Company Number: None

PATIENT
  Age: 60 Year
  Sex: Female

DRUGS (2)
  1. EXEMESTANE [Suspect]
     Indication: BREAST CANCER
     Dates: start: 20110215, end: 20110422
  2. VENLAFAXINE [Suspect]
     Indication: ANXIETY
     Dates: start: 20110315, end: 20110422

REACTIONS (7)
  - Drug-induced liver injury [None]
  - Nausea [None]
  - Aspartate aminotransferase increased [None]
  - Alanine aminotransferase increased [None]
  - Blood bilirubin increased [None]
  - Pruritus [None]
  - Eosinophilia [None]
